FAERS Safety Report 9030466 (Version 3)
Quarter: 2013Q1

REPORT INFORMATION
  Report Type: Spontaneous
  Country: US (occurrence: US)
  Receive Date: 20130122
  Receipt Date: 20130306
  Transmission Date: 20140127
  Serious: Yes (Other)
  Sender: FDA-Public Use
  Company Number: US-PFIZER INC-2013024458

PATIENT
  Age: 43 Year
  Sex: Female
  Weight: 77 kg

DRUGS (28)
  1. PRISTIQ [Suspect]
     Indication: AGORAPHOBIA
     Dosage: UNK
     Route: 048
  2. PRISTIQ [Suspect]
     Indication: DEPRESSION
     Dosage: 50 MG, 2X/DAY
     Route: 048
  3. PRISTIQ [Suspect]
     Dosage: 50 MG, 3X/DAY
     Route: 048
  4. PRISTIQ [Suspect]
     Dosage: 100 MG, 2X/DAY
     Route: 048
     Dates: start: 20130111
  5. PRISTIQ [Suspect]
     Dosage: 100MG MORNING, 50MG AFTERNOON AND 100MG NIGHT
     Route: 048
  6. PRISTIQ [Suspect]
     Dosage: 50 MG, FIVE TIMES DAILY
     Route: 048
  7. ZOLOFT [Suspect]
     Indication: AGORAPHOBIA
     Dosage: UNK
  8. LITHIUM CARBONATE [Suspect]
     Indication: AGORAPHOBIA
     Dosage: 300 MG, 3X/DAY
  9. PROZAC [Suspect]
     Indication: AGORAPHOBIA
     Dosage: UNK
  10. LAMICTAL [Suspect]
     Indication: AGORAPHOBIA
     Dosage: UNK
  11. WELLBUTRIN [Suspect]
     Indication: AGORAPHOBIA
     Dosage: UNK
  12. LEXAPRO [Suspect]
     Indication: AGORAPHOBIA
     Dosage: UNK
  13. ABILIFY [Suspect]
     Indication: AGORAPHOBIA
     Dosage: 10 MG,DAILY
  14. TOPAMAX [Suspect]
     Indication: AGORAPHOBIA
     Dosage: UNK
  15. KLONOPIN [Suspect]
     Indication: AGORAPHOBIA
     Dosage: UNK
  16. VALIUM [Suspect]
     Indication: AGORAPHOBIA
     Dosage: UNK
  17. PAXIL [Suspect]
     Indication: AGORAPHOBIA
     Dosage: UNK
  18. CELEXA [Suspect]
     Indication: AGORAPHOBIA
     Dosage: UNK
  19. CYMBALTA [Suspect]
     Indication: AGORAPHOBIA
     Dosage: UNK
  20. ANAFRANIL [Suspect]
     Indication: AGORAPHOBIA
     Dosage: UNK
  21. IMIPRAMINE [Suspect]
     Indication: AGORAPHOBIA
     Dosage: UNK
  22. TEGRETOL [Suspect]
     Indication: AGORAPHOBIA
     Dosage: UNK
  23. LUVOX [Suspect]
     Dosage: UNK
  24. SEROQUEL [Suspect]
     Indication: AGORAPHOBIA
     Dosage: UNK
  25. DEPAKOTE [Suspect]
     Indication: AGORAPHOBIA
     Dosage: UNK
  26. SEROQUEL XR [Concomitant]
     Dosage: 250 MG, DAILY
  27. XANAX [Concomitant]
     Dosage: 0.5 MG, AS NEEDED
  28. ADDERALL [Concomitant]
     Dosage: 5 MG, 2X/DAY

REACTIONS (5)
  - Off label use [Unknown]
  - Depression [Unknown]
  - Drug ineffective [Unknown]
  - Social fear [Unknown]
  - Crying [Unknown]
